FAERS Safety Report 5445497-3 (Version None)
Quarter: 2007Q3

REPORT INFORMATION
  Report Type: 
  Country: None (occurrence: None)
  Receive Date: 20070906
  Receipt Date: 20070822
  Transmission Date: 20080115
  Serious: No
  Sender: FDA-Public Use
  Company Number: US-BOEHRINGER INGELHEIM PHARMACEUTICALS, INC.-2007-BP-18841BP

PATIENT
  Sex: Male

DRUGS (6)
  1. CATAPRES-TTS-1 [Suspect]
     Indication: HYPERTENSION
     Route: 061
     Dates: start: 20070401, end: 20070714
  2. TOPROL-XL [Concomitant]
  3. FELODIPINE ER [Concomitant]
  4. CLONIDINE [Concomitant]
  5. AGGRENOX [Concomitant]
  6. SIMVASTATIN [Concomitant]

REACTIONS (3)
  - APPLICATION SITE BURN [None]
  - APPLICATION SITE DISCHARGE [None]
  - APPLICATION SITE ERYTHEMA [None]
